FAERS Safety Report 7119100-0 (Version None)
Quarter: 2010Q4

REPORT INFORMATION
  Report Type: 
  Country: None (occurrence: None)
  Receive Date: 20101123
  Receipt Date: 20101115
  Transmission Date: 20110411
  Serious: Yes (Other)
  Sender: FDA-Public Use
  Company Number: AU-PFIZER INC-2010149795

PATIENT
  Age: 30 Year
  Sex: Male

DRUGS (1)
  1. LYRICA [Suspect]
     Indication: NEURALGIA
     Dosage: 75 MG, 2X/DAY
     Route: 048
     Dates: start: 20101108, end: 20101115

REACTIONS (2)
  - URINARY RETENTION [None]
  - URINARY TRACT DISORDER [None]
